FAERS Safety Report 20406692 (Version 1)
Quarter: 2022Q1

REPORT INFORMATION
  Report Type: Spontaneous
  Country: US (occurrence: US)
  Receive Date: 20220131
  Receipt Date: 20220131
  Transmission Date: 20220424
  Serious: Yes (Death, Hospitalization)
  Sender: FDA-Public Use
  Company Number: US-GW PHARMA-202201USGW00052

PATIENT
  Sex: Male
  Weight: 44.898 kg

DRUGS (2)
  1. EPIDIOLEX [Suspect]
     Active Substance: CANNABIDIOL
     Indication: Seizure
     Dosage: 170 MILLIGRAM
     Dates: start: 20210527
  2. EPIDIOLEX [Suspect]
     Active Substance: CANNABIDIOL
     Dosage: 340 MILLIGRAM
     Dates: start: 20210527

REACTIONS (2)
  - Death [Fatal]
  - Hospitalisation [Unknown]

NARRATIVE: CASE EVENT DATE: 20220101
